FAERS Safety Report 5078592-1 (Version None)
Quarter: 2006Q3

REPORT INFORMATION
  Report Type: 
  Country: None (occurrence: None)
  Receive Date: 20060809
  Receipt Date: 20060809
  Transmission Date: 20061208
  Serious: Yes (Other)
  Sender: FDA-Public Use
  Company Number: None

PATIENT
  Age: 46 Year
  Sex: Female
  Weight: 58.9676 kg

DRUGS (6)
  1. SARAFEM [Suspect]
     Indication: PREMENSTRUAL SYNDROME
     Dosage: 10 MG 1X DAILY PO
     Route: 048
     Dates: start: 20060606, end: 20060708
  2. CONCERTA [Suspect]
     Indication: ATTENTION DEFICIT/HYPERACTIVITY DISORDER
     Dosage: 18 MG 2 X DAILY PO
     Route: 048
     Dates: start: 20050303, end: 20060802
  3. MAXALT-MLT [Concomitant]
  4. NAPROXEN [Concomitant]
  5. RENOVA [Concomitant]
  6. EXCEDRINE EXTRA STRENGTH [Concomitant]

REACTIONS (16)
  - APATHY [None]
  - BLEPHAROSPASM [None]
  - DRUG WITHDRAWAL SYNDROME [None]
  - DYSKINESIA [None]
  - EYELID FUNCTION DISORDER [None]
  - FACIAL PAIN [None]
  - FEELING ABNORMAL [None]
  - HALLUCINATION, VISUAL [None]
  - HEADACHE [None]
  - IRRITABILITY [None]
  - LETHARGY [None]
  - NECK PAIN [None]
  - PAIN IN JAW [None]
  - SENSATION OF HEAVINESS [None]
  - SOMNOLENCE [None]
  - TIC [None]
